FAERS Safety Report 26040430 (Version 1)
Quarter: 2025Q4

REPORT INFORMATION
  Report Type: Spontaneous
  Country: EU (occurrence: EU)
  Receive Date: 20251113
  Receipt Date: 20251113
  Transmission Date: 20260118
  Serious: Yes (Hospitalization, Other)
  Sender: SANOFI AVENTIS
  Company Number: None

PATIENT
  Age: 3 Month
  Sex: Male

DRUGS (1)
  1. BEYFORTUS [Suspect]
     Active Substance: NIRSEVIMAB-ALIP
     Indication: Immunisation
     Dosage: 1 DF, 1X
     Route: 030
     Dates: start: 20240923, end: 20240923

REACTIONS (4)
  - Bronchiolitis [Recovered/Resolved]
  - Pneumonia [Recovered/Resolved]
  - Oxygen therapy [Recovered/Resolved]
  - Drug ineffective [Recovered/Resolved]

NARRATIVE: CASE EVENT DATE: 20241207
